FAERS Safety Report 20531642 (Version 2)
Quarter: 2022Q2

REPORT INFORMATION
  Report Type: Spontaneous
  Country: US (occurrence: US)
  Receive Date: 20220301
  Receipt Date: 20220414
  Transmission Date: 20220721
  Serious: No
  Sender: FDA-Public Use
  Company Number: US-AIMMUNE THERAPEUTICS, INC.-2022AIMT00146

PATIENT

DRUGS (6)
  1. PALFORZIA [Suspect]
     Active Substance: PEANUT
     Indication: Food allergy
     Dosage: IDE (0.5MG-6MG)
     Route: 048
     Dates: start: 20220217, end: 20220217
  2. PALFORZIA [Suspect]
     Active Substance: PEANUT
     Dosage: 1.5 MG (IDE), ONCE, LAST DOSE PRIOR EVENT
     Route: 048
     Dates: start: 20220217, end: 20220217
  3. ZYRTEC [Concomitant]
     Active Substance: CETIRIZINE HYDROCHLORIDE
     Indication: Hypersensitivity
     Dosage: 5 ML, 1X/DAY, AT NIGHT
     Dates: start: 2021, end: 20220216
  4. ZYRTEC [Concomitant]
     Active Substance: CETIRIZINE HYDROCHLORIDE
     Dosage: 5 ML, 2X/DAY, MORNING AND NIGHT
     Dates: start: 20220217
  5. FLOVENT [Concomitant]
     Active Substance: FLUTICASONE PROPIONATE
     Indication: Product used for unknown indication
     Dosage: 44 MCG (1 PUFF A DAY), IN THE MORNING
     Dates: start: 202111
  6. SINGULAIR [Concomitant]
     Active Substance: MONTELUKAST SODIUM
     Indication: Dyspnoea
     Dosage: 5 MG, 1X/DAY, IN THE MORNING
     Dates: start: 202111

REACTIONS (2)
  - Abdominal pain upper [Recovered/Resolved]
  - Vomiting [Recovered/Resolved]

NARRATIVE: CASE EVENT DATE: 20220217
